FAERS Safety Report 10671626 (Version 1)
Quarter: 2014Q4

REPORT INFORMATION
  Report Type: Spontaneous
  Country: BR (occurrence: BR)
  Receive Date: 20141223
  Receipt Date: 20141223
  Transmission Date: 20150529
  Serious: Yes (Other)
  Sender: FDA-Public Use
  Company Number: BR-PFIZER INC-2014349862

PATIENT
  Age: 45 Year
  Sex: Female
  Weight: 63 kg

DRUGS (5)
  1. CELEBRA [Suspect]
     Active Substance: CELECOXIB
     Indication: ANALGESIC THERAPY
  2. AMITRIL [Concomitant]
     Active Substance: AMITRIPTYLINE HYDROCHLORIDE
     Indication: ANXIOLYTIC THERAPY
     Dosage: 1 TABLET, DAILY
     Dates: start: 2008
  3. CYMBALTA [Concomitant]
     Active Substance: DULOXETINE HYDROCHLORIDE
     Dosage: 1 DF, DAILY
     Dates: start: 2008
  4. RIVOTRIL [Concomitant]
     Active Substance: CLONAZEPAM
     Indication: ANXIOLYTIC THERAPY
     Dosage: 1 TABLET, 1X/DAY AT NIGHT SPORADICALLY
     Dates: start: 2008
  5. CELEBRA [Suspect]
     Active Substance: CELECOXIB
     Indication: ANTIINFLAMMATORY THERAPY
     Dosage: 400 MG, 1X/DAY AT NIGHT
     Route: 048
     Dates: start: 2008

REACTIONS (2)
  - Bedridden [Unknown]
  - Pain [Recovering/Resolving]
